FAERS Safety Report 6064174-1 (Version None)
Quarter: 2009Q1

REPORT INFORMATION
  Report Type: 
  Country: None (occurrence: None)
  Receive Date: 20090204
  Receipt Date: 20090123
  Transmission Date: 20090719
  Serious: Yes (Other)
  Sender: FDA-Public Use
  Company Number: GB-PFIZER INC-2008153903

PATIENT

DRUGS (2)
  1. ARTHROTEC [Suspect]
     Dosage: 75 MG, ALTERNATE DAY
     Dates: start: 20081009
  2. QUININE SULPHATE [Concomitant]
     Dosage: 300 MG, UNK
     Route: 048

REACTIONS (2)
  - BLOOD PROLACTIN INCREASED [None]
  - BLOOD TESTOSTERONE DECREASED [None]
